FAERS Safety Report 25430459 (Version 1)
Quarter: 2025Q2

REPORT INFORMATION
  Report Type: Spontaneous
  Country: US (occurrence: None)
  Receive Date: 20250612
  Receipt Date: 20250612
  Transmission Date: 20250717
  Serious: No
  Sender: FDA-CTU
  Company Number: None

PATIENT
  Age: 88 Year
  Sex: Male
  Weight: 96.3 kg

DRUGS (10)
  1. REVLIMID [Suspect]
     Active Substance: LENALIDOMIDE
     Route: 048
     Dates: start: 20250522
  2. ALLOPURINOL [Concomitant]
     Active Substance: ALLOPURINOL
  3. BEMPEDOIC ACID [Concomitant]
     Active Substance: BEMPEDOIC ACID
  4. clonazemap [Concomitant]
  5. DOCUSATE [Concomitant]
     Active Substance: DOCUSATE
  6. DOFETILIDE [Concomitant]
     Active Substance: DOFETILIDE
  7. FUROSEMIDE [Concomitant]
     Active Substance: FUROSEMIDE
  8. GABAPENTIN [Concomitant]
     Active Substance: GABAPENTIN
  9. REPATHA [Concomitant]
     Active Substance: EVOLOCUMAB
  10. XARELTO [Concomitant]
     Active Substance: RIVAROXABAN

REACTIONS (1)
  - Limb discomfort [None]

NARRATIVE: CASE EVENT DATE: 20250612
